FAERS Safety Report 8988646 (Version 1)
Quarter: 2012Q4

REPORT INFORMATION
  Report Type: 
  Country: US (occurrence: US)
  Receive Date: 20121228
  Receipt Date: 20121228
  Transmission Date: 20130627
  Serious: Yes (Other)
  Sender: FDA-Public Use
  Company Number: US-SANOFI-AVENTIS-2012SA093264

PATIENT
  Age: 65 Year
  Sex: Female

DRUGS (3)
  1. LANTUS SOLOSTAR [Suspect]
     Dosage: 16-18 units
     Route: 058
     Dates: start: 2004
  2. SOLOSTAR [Suspect]
     Dates: start: 2004
  3. HUMALOG [Concomitant]

REACTIONS (2)
  - Upper limb fracture [Unknown]
  - Contusion [Unknown]
